FAERS Safety Report 18771582 (Version 2)
Quarter: 2021Q1

REPORT INFORMATION
  Report Type: Spontaneous
  Country: JP (occurrence: JP)
  Receive Date: 20210122
  Receipt Date: 20210322
  Transmission Date: 20210419
  Serious: Yes (Hospitalization, Other)
  Sender: FDA-Public Use
  Company Number: JP-AMGEN-JPNSP2019207864

PATIENT
  Age: 73 Year
  Sex: Female

DRUGS (32)
  1. MIYA?BM [Concomitant]
     Active Substance: CLOSTRIDIUM BUTYRICUM SPORES STRAIN M-55
     Indication: DIARRHOEA
     Dosage: 1 GRAM, TID, AFTER EACH MEAL
     Route: 048
     Dates: start: 20190730
  2. EMEND [Concomitant]
     Active Substance: APREPITANT
     Indication: PRODUCT USED FOR UNKNOWN INDICATION
     Dosage: 125 MILLIGRAM, 1 HOUR BEFORE CHEMOTHERAPY
     Route: 048
  3. LEUCON [ADENINE] [Concomitant]
     Active Substance: ADENINE
     Indication: LEUKOPENIA
     Dosage: 10 MILLIGRAM, TID
     Route: 048
     Dates: start: 20180815
  4. LIXIANA OD [Concomitant]
     Active Substance: EDOXABAN TOSYLATE
     Dosage: 60 MG, QD, AFTER BREAKFAST
     Route: 048
  5. THYRADIN?S [Concomitant]
     Active Substance: LEVOTHYROXINE
     Indication: PRODUCT USED FOR UNKNOWN INDICATION
     Dosage: 25 UG, QD, AFTER BREAKFAST
     Route: 048
  6. HUMULIN R [Concomitant]
     Active Substance: INSULIN HUMAN
     Indication: PRODUCT USED FOR UNKNOWN INDICATION
     Dosage: 200 MILLILITER
     Route: 065
  7. G?LASTA [Suspect]
     Active Substance: PEGFILGRASTIM
     Indication: COLONY STIMULATING FACTOR THERAPY
     Dosage: 3.6 MILLIGRAM, QD (6 TIMES IN TOTAL)
     Route: 058
     Dates: start: 20190911, end: 20191120
  8. FLUOROURACIL. [Concomitant]
     Active Substance: FLUOROURACIL
     Dosage: 216 MILLIGRAM
     Route: 040
  9. JUZENTAIHOTO [ANGELICA ACUTILOBA ROOT;ASTRAGALUS SPP. ROOT;ATRACTYLODE [Concomitant]
     Active Substance: HERBALS
     Indication: FATIGUE
     Dosage: 2.5 MILLIGRAM, TID, BEFORE EACH MEAL
     Route: 048
     Dates: start: 20190130
  10. ISOTONIC SODIUM CHLORIDE SOLUTION [Concomitant]
     Active Substance: SODIUM CHLORIDE
     Indication: PRODUCT USED FOR UNKNOWN INDICATION
     Dosage: 200 MILLILITER
     Route: 041
  11. GLUCOSE [Concomitant]
     Active Substance: DEXTROSE
     Indication: PRODUCT USED FOR UNKNOWN INDICATION
     Dosage: 750 MILLILITER
     Route: 042
  12. FLAGYL [Concomitant]
     Active Substance: METRONIDAZOLE\METRONIDAZOLE HYDROCHLORIDE
     Indication: CLOSTRIDIUM DIFFICILE COLITIS
     Dosage: 250 MILLIGRAM, QID
     Route: 048
     Dates: start: 20191126, end: 20191202
  13. LACTEC [Concomitant]
     Active Substance: CALCIUM CHLORIDE ANHYDROUS\POTASSIUM CHLORIDE\SODIUM CHLORIDE\SODIUM LACTATE
     Indication: PRODUCT USED FOR UNKNOWN INDICATION
     Dosage: 500 MILLILITER
     Route: 041
  14. OXALIPLATIN. [Concomitant]
     Active Substance: OXALIPLATIN
     Indication: PANCREATIC CARCINOMA
     Dosage: 78 MILLIGRAM
     Route: 041
     Dates: start: 20190724, end: 20191218
  15. FAMOTIDINE. [Concomitant]
     Active Substance: FAMOTIDINE
     Indication: GASTRIC ULCER
     Dosage: 20 MILLIGRAM, BID, AFTER BREAKFAST AND DINNER
     Route: 048
     Dates: start: 20190109
  16. LIXIANA OD [Concomitant]
     Active Substance: EDOXABAN TOSYLATE
     Indication: SUBCLAVIAN VEIN THROMBOSIS
     Dosage: 30 MILLIGRAM, QD
     Route: 048
     Dates: start: 20191009
  17. FUROSEMIDE. [Concomitant]
     Active Substance: FUROSEMIDE
     Indication: OEDEMA
     Dosage: 20 MILLIGRAM, QD, AFTER BREAKFAST
     Route: 048
     Dates: start: 20191007
  18. BIOFERMIN R [Concomitant]
     Active Substance: DIETARY SUPPLEMENT\PROBIOTICS
     Indication: ENTEROCOLITIS
     Dosage: 1 GRAM, TID
     Route: 048
     Dates: start: 20191129, end: 20191205
  19. CEFTRIAXONE SODIUM HYDRATE [Concomitant]
     Active Substance: CEFTRIAXONE SODIUM
     Indication: DEVICE RELATED INFECTION
     Dosage: 1 G, BID
     Route: 041
     Dates: start: 20191127, end: 20191201
  20. GRANISETRON [GRANISETRON HYDROCHLORIDE] [Concomitant]
     Active Substance: GRANISETRON HYDROCHLORIDE
     Indication: PRODUCT USED FOR UNKNOWN INDICATION
     Dosage: 1 MILLIGRAM
     Route: 041
     Dates: start: 20190724, end: 20191218
  21. FLUOROURACIL. [Concomitant]
     Active Substance: FLUOROURACIL
     Indication: PANCREATIC CARCINOMA
     Dosage: 2000 MILLIGRAM
     Route: 041
  22. BIOFERMIN R [Concomitant]
     Active Substance: DIETARY SUPPLEMENT\PROBIOTICS
     Dosage: UNK
     Route: 065
  23. DEXART [Concomitant]
     Active Substance: DEXAMETHASONE SODIUM PHOSPHATE
     Indication: PRODUCT USED FOR UNKNOWN INDICATION
     Dosage: 9.9 MILLIGRAM, QD, (8 TIMES IN TOTAL)
     Route: 041
     Dates: start: 20190724, end: 20191218
  24. JANUVIA [Concomitant]
     Active Substance: SITAGLIPTIN PHOSPHATE
     Indication: PRODUCT USED FOR UNKNOWN INDICATION
     Dosage: 50 MILLIGRAM, QD, AFTER BREAKFAST
     Route: 048
  25. ISOTONIC SODIUM CHLORIDE SOLUTION [Concomitant]
     Active Substance: SODIUM CHLORIDE
     Dosage: 50 MILLILITER
     Route: 065
  26. LEVOFOLINATE [CALCIUM LEVOFOLINATE] [Concomitant]
     Active Substance: LEVOLEUCOVORIN CALCIUM
     Indication: PANCREATIC CARCINOMA
     Dosage: 184 MILLIGRAM
     Route: 041
     Dates: start: 20190724, end: 20191218
  27. TAZOPIPE [Concomitant]
     Active Substance: PIPERACILLIN SODIUM\TAZOBACTAM SODIUM
     Indication: DEVICE RELATED INFECTION
     Dosage: 4.5 GRAM, BID
     Route: 041
     Dates: start: 20191130, end: 20191210
  28. SOLDEM 3A [Concomitant]
     Active Substance: CARBOHYDRATES\POTASSIUM CHLORIDE\SODIUM CHLORIDE\SODIUM LACTATE
     Indication: PRODUCT USED FOR UNKNOWN INDICATION
     Dosage: 500 MILLILITER
     Route: 042
  29. IRINOTECAN HYDROCHLORIDE. [Concomitant]
     Active Substance: IRINOTECAN HYDROCHLORIDE
     Indication: PANCREATIC CARCINOMA
     Dosage: 111 MILLIGRAM
     Route: 041
     Dates: start: 20190724, end: 20191218
  30. LEUCON [ADENINE] [Concomitant]
     Active Substance: ADENINE
     Dosage: 20 MG, TID AFTER EACH MEAL
     Route: 048
  31. DECADRON [Concomitant]
     Active Substance: DEXAMETHASONE
     Indication: PRODUCT USED FOR UNKNOWN INDICATION
     Dosage: 8 MILLIGRAM, BID, AFTER BREAKFAST AND DINNER
     Route: 048
  32. ISOTONIC SODIUM CHLORIDE SOLUTION [Concomitant]
     Active Substance: SODIUM CHLORIDE
     Dosage: 20 MILLILITER
     Route: 065

REACTIONS (8)
  - Subclavian vein thrombosis [Recovered/Resolved]
  - Gastroenteritis clostridial [Recovered/Resolved]
  - Enterocolitis [Recovered/Resolved]
  - Device related infection [Recovered/Resolved]
  - Oedema [Recovering/Resolving]
  - Arteritis [Recovered/Resolved]
  - Diarrhoea [Recovered/Resolved]
  - Aortitis [Recovered/Resolved]

NARRATIVE: CASE EVENT DATE: 20191007
